FAERS Safety Report 6964547-6 (Version None)
Quarter: 2010Q3

REPORT INFORMATION
  Report Type: 
  Country: None (occurrence: None)
  Receive Date: 20100903
  Receipt Date: 20100827
  Transmission Date: 20110219
  Serious: Yes (Death, Hospitalization, Other)
  Sender: FDA-Public Use
  Company Number: PHHY2010US52854

PATIENT
  Sex: Female

DRUGS (20)
  1. EXJADE [Suspect]
     Indication: MYELODYSPLASTIC SYNDROME
     Dosage: 1000 MG, QD
     Route: 048
  2. EXJADE [Suspect]
     Dosage: 2500 MG
  3. ACETAMINOPHEN [Concomitant]
  4. DIPHENHYDRAMINE HCL [Concomitant]
  5. SYNTHROID [Concomitant]
     Dosage: 0.125 MG DAILY
  6. CYTOMEL [Concomitant]
     Dosage: 25 MG DAILY
  7. PREVACID [Concomitant]
     Dosage: 30 MG DAILY
  8. VITAMIN A [Concomitant]
     Dosage: DAILY
  9. ASCORBIC ACID [Concomitant]
     Dosage: DAILY
  10. MULTI-VITAMINS [Concomitant]
  11. VITAMIN B COMPLEX CAP [Concomitant]
  12. CALCIUM WITH VITAMIN D [Concomitant]
     Dosage: DAILY
  13. CELEXA [Concomitant]
     Dosage: 20 MG DAILY
  14. GLUCOSAMINE [Concomitant]
  15. CHONDROITIN [Concomitant]
     Dosage: UNK
  16. LEVOPHED [Concomitant]
     Indication: SEPTIC SHOCK
  17. VASOPRESSIN INJECTION [Concomitant]
     Indication: SEPTIC SHOCK
  18. CIPROFLOXACIN [Concomitant]
     Indication: SEPTIC SHOCK
  19. HEPARIN [Concomitant]
     Indication: DEEP VEIN THROMBOSIS
  20. PROTON PUMP INHIBITORS [Concomitant]
     Indication: GASTRITIS

REACTIONS (38)
  - ABDOMINAL PAIN [None]
  - AGGRESSION [None]
  - BREATH SOUNDS ABNORMAL [None]
  - COAGULOPATHY [None]
  - CONFUSIONAL STATE [None]
  - CONSTIPATION [None]
  - DECREASED APPETITE [None]
  - DEEP VEIN THROMBOSIS [None]
  - DEHYDRATION [None]
  - DEMENTIA [None]
  - DIARRHOEA [None]
  - DRY MOUTH [None]
  - ESCHERICHIA TEST POSITIVE [None]
  - EYES SUNKEN [None]
  - GASTROINTESTINAL SOUNDS ABNORMAL [None]
  - HAEMODYNAMIC INSTABILITY [None]
  - HAEMOGLOBIN DECREASED [None]
  - HEPATIC FUNCTION ABNORMAL [None]
  - HYPOGLYCAEMIA [None]
  - HYPOTENSION [None]
  - HYPOTHERMIA [None]
  - INTESTINAL ISCHAEMIA [None]
  - LACTIC ACIDOSIS [None]
  - MALAISE [None]
  - MULTI-ORGAN FAILURE [None]
  - PLATELET DISORDER [None]
  - PLEURAL EFFUSION [None]
  - PULSE ABNORMAL [None]
  - RENAL FAILURE [None]
  - RESPIRATORY FAILURE [None]
  - SEPSIS [None]
  - SEPTIC SHOCK [None]
  - SHOCK [None]
  - SOMNOLENCE [None]
  - TACHYCARDIA [None]
  - TENDERNESS [None]
  - THROMBOCYTOPENIA [None]
  - UTERINE ISCHAEMIA [None]
